FAERS Safety Report 14963960 (Version 2)
Quarter: 2019Q2

REPORT INFORMATION
  Report Type: Spontaneous
  Country: FR (occurrence: FR)
  Receive Date: 20180601
  Receipt Date: 20190516
  Transmission Date: 20190711
  Serious: Yes (Other)
  Sender: FDA-Public Use
  Company Number: FR-SA-2018SA142158

PATIENT
  Sex: Female

DRUGS (2)
  1. CLOMIFENE CITRATE [Suspect]
     Active Substance: CLOMIPHENE
     Indication: POLYCYSTIC OVARIES
     Dosage: UNK
     Route: 048
  2. CLOMIFENE CITRATE [Suspect]
     Active Substance: CLOMIPHENE
     Dosage: UNK
     Route: 048

REACTIONS (1)
  - Cervix carcinoma stage I [Not Recovered/Not Resolved]

NARRATIVE: CASE EVENT DATE: 20180118
